FAERS Safety Report 10778545 (Version 1)
Quarter: 2015Q1

REPORT INFORMATION
  Report Type: Spontaneous
  Country: US (occurrence: US)
  Receive Date: 20150210
  Receipt Date: 20150210
  Transmission Date: 20150721
  Serious: No
  Sender: FDA-Public Use
  Company Number: US-BRISTOL-MYERS SQUIBB COMPANY-BMS-2015-006268

PATIENT
  Sex: Female

DRUGS (1)
  1. SPRYCEL [Suspect]
     Active Substance: DASATINIB
     Indication: CHRONIC MYELOID LEUKAEMIA
     Dosage: 100 MG, QD
     Route: 065
     Dates: start: 20150117

REACTIONS (7)
  - Back pain [Unknown]
  - Oedema [Unknown]
  - Eyelid oedema [Unknown]
  - Joint swelling [Unknown]
  - Headache [Unknown]
  - Constipation [Unknown]
  - Peripheral swelling [Unknown]
